FAERS Safety Report 23947721 (Version 1)
Quarter: 2024Q2

REPORT INFORMATION
  Report Type: Spontaneous
  Country: US (occurrence: US)
  Receive Date: 20240606
  Receipt Date: 20240606
  Transmission Date: 20240715
  Serious: No
  Sender: FDA-Public Use
  Company Number: US-SERB S.A.S.-2157855

PATIENT
  Sex: Male

DRUGS (1)
  1. VORAXAZE [Suspect]
     Active Substance: GLUCARPIDASE
     Indication: Product used for unknown indication
     Route: 065
     Dates: start: 20240306

REACTIONS (1)
  - Off label use [Unknown]
